FAERS Safety Report 6806834-8 (Version None)
Quarter: 2010Q2

REPORT INFORMATION
  Report Type: 
  Country: None (occurrence: None)
  Receive Date: 20100629
  Receipt Date: 20100616
  Transmission Date: 20101027
  Serious: Yes (Hospitalization, Other)
  Sender: FDA-Public Use
  Company Number: GB-ELI_LILLY_AND_COMPANY-GB201006004599

PATIENT
  Age: 76 Year
  Sex: Male
  Weight: 76 kg

DRUGS (5)
  1. TADALAFIL [Suspect]
     Indication: ERECTILE DYSFUNCTION
     Dosage: 10 MG, UNKNOWN
     Route: 048
     Dates: start: 20100526, end: 20100526
  2. ACETAZOLAM [Concomitant]
     Indication: INTRACRANIAL PRESSURE INCREASED
     Dosage: 125 MG, 2/D
     Route: 048
  3. BISOPROLOL FUMARATE [Concomitant]
     Indication: HYPERTENSION
     Dosage: 2.5 MG, UNKNOWN
     Route: 048
  4. FYBOGEL [Concomitant]
     Indication: CONSTIPATION
     Dosage: 1 D/F, UNKNOWN
     Route: 048
  5. IRBESARTAN [Concomitant]
     Indication: HYPERTENSION
     Dosage: 300 MG, UNKNOWN
     Route: 048

REACTIONS (10)
  - BALANCE DISORDER [None]
  - CHEST PAIN [None]
  - DYSPNOEA [None]
  - ERUCTATION [None]
  - HEADACHE [None]
  - HYPOAESTHESIA [None]
  - MUSCULOSKELETAL STIFFNESS [None]
  - NAUSEA [None]
  - SUPRAPUBIC PAIN [None]
  - SWELLING FACE [None]
